FAERS Safety Report 9162134 (Version 2)
Quarter: 2013Q1

REPORT INFORMATION
  Report Type: Report from Study
  Country: US (occurrence: US)
  Receive Date: 20130314
  Receipt Date: 20130321
  Transmission Date: 20140127
  Serious: Yes (Hospitalization, Disabling)
  Sender: FDA-Public Use
  Company Number: US-UCBSA-080231

PATIENT
  Age: 80 Year
  Sex: Male
  Weight: 77.1 kg

DRUGS (2)
  1. LACOSAMIDE [Suspect]
     Indication: CONVULSION
     Route: 048
     Dates: start: 20121217, end: 201302
  2. LEVETIRACETAM [Concomitant]

REACTIONS (1)
  - Unresponsive to stimuli [Recovering/Resolving]
